FAERS Safety Report 6240214-1 (Version None)
Quarter: 2009Q2

REPORT INFORMATION
  Report Type: 
  Country: None (occurrence: None)
  Receive Date: 20090623
  Receipt Date: 20080602
  Transmission Date: 20091009
  Serious: No
  Sender: FDA-Public Use
  Company Number: US-ASTRAZENECA-2008UW06096

PATIENT
  Age: 39 Year
  Sex: Female
  Weight: 52.2 kg

DRUGS (4)
  1. PULMICORT-100 [Suspect]
     Indication: ASTHMA
     Dosage: 1 PUFF/DAY
     Route: 055
  2. SINGULAIR [Concomitant]
  3. VENTOLIN [Concomitant]
  4. ZYRTEC [Concomitant]

REACTIONS (3)
  - DYSPHONIA [None]
  - DYSPNOEA [None]
  - WHEEZING [None]
